FAERS Safety Report 14774904 (Version 1)
Quarter: 2018Q2

REPORT INFORMATION
  Report Type: Spontaneous
  Country: US (occurrence: US)
  Receive Date: 20180418
  Receipt Date: 20180418
  Transmission Date: 20180711
  Serious: Yes (Hospitalization, Other)
  Sender: FDA-Public Use
  Company Number: US-DRREDDYS-USA/USA/18/0097764

PATIENT
  Age: 24 Year
  Sex: Female

DRUGS (6)
  1. PIPERACILLIN/TAZOBACTAM [Suspect]
     Active Substance: PIPERACILLIN SODIUM\TAZOBACTAM SODIUM
     Indication: CYSTIC FIBROSIS RESPIRATORY INFECTION SUPPRESSION
     Route: 065
  2. LINEZOLID. [Suspect]
     Active Substance: LINEZOLID
     Indication: CYSTIC FIBROSIS RESPIRATORY INFECTION SUPPRESSION
     Route: 065
  3. CIPROFLOXACIN. [Suspect]
     Active Substance: CIPROFLOXACIN
     Indication: CYSTIC FIBROSIS RESPIRATORY INFECTION SUPPRESSION
     Route: 065
  4. MICAFUNGIN [Suspect]
     Active Substance: MICAFUNGIN
     Indication: CYSTIC FIBROSIS RESPIRATORY INFECTION SUPPRESSION
     Route: 065
  5. VORICONAZOLE. [Suspect]
     Active Substance: VORICONAZOLE
     Indication: CYSTIC FIBROSIS RESPIRATORY INFECTION SUPPRESSION
     Route: 065
  6. GANCICLOVIR. [Suspect]
     Active Substance: GANCICLOVIR
     Indication: CYSTIC FIBROSIS RESPIRATORY INFECTION SUPPRESSION
     Route: 065

REACTIONS (2)
  - Treatment failure [Unknown]
  - Pleural effusion [Recovered/Resolved]
